FAERS Safety Report 5635753-8 (Version None)
Quarter: 2008Q1

REPORT INFORMATION
  Report Type: 
  Country: None (occurrence: None)
  Receive Date: 20080220
  Receipt Date: 20080207
  Transmission Date: 20080703
  Serious: Yes (Life-Threatening, Hospitalization, Disabling, Other)
  Sender: FDA-Public Use
  Company Number: 100#03#2007-04722

PATIENT
  Age: 80 Year
  Sex: Male

DRUGS (8)
  1. SIMVASTATIN [Suspect]
     Indication: DRUG USE FOR UNKNOWN INDICATION
     Dosage: 20 MG ONCE DAILY, ORAL
     Route: 048
     Dates: start: 20050401, end: 20051121
  2. ERYTHROMYCIN [Suspect]
     Indication: DRUG USE FOR UNKNOWN INDICATION
     Dosage: 500 MG FOUR TIMES DAILY, ORAL
     Route: 048
     Dates: start: 20051025, end: 20051121
  3. BUMETANIDE [Concomitant]
  4. CARDICOR (BISOPROLOL) [Concomitant]
  5. DIGOXIN [Concomitant]
  6. LANSOPRAZOLE [Concomitant]
  7. TRAMADOL HCL [Concomitant]
  8. WARFARIN SODIUM [Concomitant]

REACTIONS (3)
  - DRUG INTERACTION [None]
  - RENAL FAILURE [None]
  - RHABDOMYOLYSIS [None]
